FAERS Safety Report 8935042 (Version 2)
Quarter: 2012Q4

REPORT INFORMATION
  Report Type: 
  Country: CO (occurrence: CO)
  Receive Date: 20121129
  Receipt Date: 20121213
  Transmission Date: 20130627
  Serious: Yes (Other)
  Sender: FDA-Public Use
  Company Number: CO-VERTEX PHARMACEUTICAL INC.-2012-025317

PATIENT
  Sex: Female

DRUGS (3)
  1. INCIVO [Suspect]
     Indication: HEPATITIS C
     Dosage: Dosage Form: Tablet
     Route: 048
     Dates: start: 20121017
  2. RIBAVIRIN [Concomitant]
     Dosage: Dosage Form: Unknown
     Route: 065
  3. INTERFERON [Concomitant]
     Indication: PRODUCT USED FOR UNKNOWN INDICATION
     Dosage: Dosage Form: Unknown
     Route: 065

REACTIONS (3)
  - Swelling face [Unknown]
  - Oedema peripheral [Unknown]
  - Decreased appetite [Unknown]
